FAERS Safety Report 8524499-4 (Version None)
Quarter: 2012Q3

REPORT INFORMATION
  Report Type: 
  Country: None (occurrence: None)
  Receive Date: 20120720
  Receipt Date: 20120712
  Transmission Date: 20120928
  Serious: Yes (Hospitalization)
  Sender: FDA-Public Use
  Company Number: JP-ACTELION-A-CH2012-68734

PATIENT
  Sex: Female
  Weight: 64.1 kg

DRUGS (10)
  1. DABIGATRAN ETEXILATE [Concomitant]
  2. TRACLEER [Suspect]
     Indication: PULMONARY HYPERTENSION
     Dosage: 62.5 MG, BID
     Route: 048
     Dates: start: 20120124, end: 20120220
  3. SITAGLIPTIN PHOSPHATE [Concomitant]
  4. ALISKIREN FUMARATE [Concomitant]
  5. DONEPEZIL HCL [Concomitant]
  6. CARVEDILOL [Concomitant]
  7. LANSOPRAZOLE [Concomitant]
  8. AMLODIPINE BESILATE W/ATORVASTATIN CALCIUM [Concomitant]
  9. VALSARTAN [Concomitant]
  10. SENNA LEAF [Concomitant]

REACTIONS (5)
  - HEPATITIS ACUTE [None]
  - GAMMA-GLUTAMYLTRANSFERASE INCREASED [None]
  - BLOOD BILIRUBIN INCREASED [None]
  - ASPARTATE AMINOTRANSFERASE INCREASED [None]
  - ALANINE AMINOTRANSFERASE INCREASED [None]
